FAERS Safety Report 5274345-X (Version None)
Quarter: 2007Q1

REPORT INFORMATION
  Report Type: 
  Country: None (occurrence: None)
  Receive Date: 20070323
  Receipt Date: 20070314
  Transmission Date: 20070707
  Serious: Yes (Disabling)
  Sender: FDA-Public Use
  Company Number: JP-MERCK-0703USA04317

PATIENT
  Age: 75 Year
  Sex: Female
  Weight: 45 kg

DRUGS (6)
  1. XALATAN [Concomitant]
     Indication: GLAUCOMA
     Route: 047
     Dates: start: 20010601
  2. TRUSOPT [Suspect]
     Indication: GLAUCOMA
     Route: 047
     Dates: start: 19980101, end: 20000831
  3. SANPILO [Concomitant]
     Indication: GLAUCOMA
     Route: 065
     Dates: start: 19980101, end: 20000831
  4. RESCULA [Concomitant]
     Indication: GLAUCOMA
     Route: 065
     Dates: start: 19980101, end: 20000831
  5. BETAXOLOL HYDROCHLORIDE [Concomitant]
     Indication: GLAUCOMA
     Route: 065
     Dates: start: 19980101, end: 20000831
  6. TIMOPTIC-XE [Concomitant]
     Indication: GLAUCOMA
     Route: 047
     Dates: start: 20010501

REACTIONS (1)
  - CONJUNCTIVAL DISORDER [None]
